FAERS Safety Report 15550785 (Version 1)
Quarter: 2018Q4

REPORT INFORMATION
  Report Type: Spontaneous
  Country: US (occurrence: US)
  Receive Date: 20181025
  Receipt Date: 20181025
  Transmission Date: 20190205
  Serious: Yes (Other)
  Sender: FDA-Public Use
  Company Number: US-PFIZER INC-2018426623

PATIENT
  Age: 52 Year
  Sex: Female

DRUGS (6)
  1. OMEPRAZOLE. [Concomitant]
     Active Substance: OMEPRAZOLE
     Dosage: UNK
  2. VITAMIN D [Concomitant]
     Active Substance: CHOLECALCIFEROL
     Dosage: UNK
  3. CYCLOBENZAPRINE. [Concomitant]
     Active Substance: CYCLOBENZAPRINE
     Dosage: UNK
  4. POTASSIUM [Concomitant]
     Active Substance: POTASSIUM
     Dosage: UNK
  5. DOMPERIDONE [Concomitant]
     Active Substance: DOMPERIDONE
     Dosage: UNK
  6. LYRICA [Suspect]
     Active Substance: PREGABALIN
     Indication: FIBROMYALGIA
     Dosage: UNK

REACTIONS (16)
  - Lung disorder [Unknown]
  - Renal disorder [Unknown]
  - Feeling abnormal [Unknown]
  - Heart rate decreased [Unknown]
  - Blood potassium decreased [Unknown]
  - Bradyphrenia [Unknown]
  - Speech disorder [Unknown]
  - Cough [Not Recovered/Not Resolved]
  - Dysarthria [Unknown]
  - Cerebrovascular accident [Unknown]
  - Staphylococcal infection [Unknown]
  - Heart rate increased [Unknown]
  - Pneumonia [Unknown]
  - Gait disturbance [Unknown]
  - Movement disorder [Unknown]
  - Somnolence [Unknown]
